FAERS Safety Report 6022730-0 (Version None)
Quarter: 2008Q4

REPORT INFORMATION
  Report Type: 
  Country: None (occurrence: None)
  Receive Date: 20081223
  Receipt Date: 20081218
  Transmission Date: 20090506
  Serious: Yes (Death)
  Sender: FDA-Public Use
  Company Number: 2008JP005854

PATIENT
  Age: 4 Year
  Sex: Male
  Weight: 17 kg

DRUGS (16)
  1. FUNGUARD(MICAFUNGIN) INJECTION [Suspect]
     Indication: ANTIFUNGAL PROPHYLAXIS
     Dosage: 20 MG,  /D, IV DRIP
     Route: 041
     Dates: start: 20080228, end: 20080323
  2. PROGRAF [Suspect]
     Dosage: 0.24 MG, /D
  3. ITRACONAZOLE [Concomitant]
  4. CARBENIN (BETAMIPRON, PANIPENEM) INJECTION [Concomitant]
  5. ACICLOVIR (ACICLOVIR SODIUM) INJECTION [Concomitant]
  6. TARGOCID [Concomitant]
  7. MAXIPIME [Concomitant]
  8. METHOTREXATE [Concomitant]
  9. NEUTROGIN (LENOGRASTIM) INJECTION [Concomitant]
  10. SANGLOPOR (IMMUNOGLOBULIN) INJECTION [Concomitant]
  11. ATARAX-P (HYDROXYZINE HYDROCHLORIDE) INJECTION [Concomitant]
  12. LEPETAN (BUPRENORPHINE HYDROCHLORIDE) INJECTION [Concomitant]
  13. LASIX (FUROSEMIDE) INJECTION [Concomitant]
  14. GASTER (FAMOTIDINE) INJECTION [Concomitant]
  15. NEUART (ANTITHROMBIN III) INJECTION [Concomitant]
  16. BUSCOPAN (HYOSCINE BUTYLBROMIDE) FORMULATION UNKNOWN [Concomitant]

REACTIONS (7)
  - ABDOMINAL PAIN [None]
  - ACUTE LYMPHOCYTIC LEUKAEMIA [None]
  - BONE MARROW FAILURE [None]
  - DIARRHOEA [None]
  - HYPERKALAEMIA [None]
  - STEM CELL TRANSPLANT [None]
  - STOMATITIS [None]
